FAERS Safety Report 23648350 (Version 1)
Quarter: 2024Q1

REPORT INFORMATION
  Report Type: Spontaneous
  Country: AU (occurrence: AU)
  Receive Date: 20240319
  Receipt Date: 20240319
  Transmission Date: 20240409
  Serious: Yes (Other)
  Sender: FDA-Public Use
  Company Number: AU-ANIPHARMA-2024-AU-000171

PATIENT
  Sex: Female

DRUGS (8)
  1. ANASTROZOLE [Suspect]
     Active Substance: ANASTROZOLE
     Indication: Product used for unknown indication
     Route: 048
  2. ESOMEPRAZOLE [Suspect]
     Active Substance: ESOMEPRAZOLE
     Route: 048
  3. MONTELUKAST [Concomitant]
     Active Substance: MONTELUKAST SODIUM
  4. LORATADINE [Concomitant]
     Active Substance: LORATADINE
  5. FAMOTIDINE [Concomitant]
     Active Substance: FAMOTIDINE
  6. APIXABAN [Concomitant]
     Active Substance: APIXABAN
  7. OPTISULIN [Concomitant]
  8. NOVORAPID [Concomitant]
     Active Substance: INSULIN ASPART

REACTIONS (1)
  - Mast cell activation syndrome [Unknown]
